FAERS Safety Report 9664991 (Version 2)
Quarter: 2014Q4

REPORT INFORMATION
  Report Type: Report from Study
  Country: VE (occurrence: VE)
  Receive Date: 20131103
  Receipt Date: 20141027
  Transmission Date: 20150529
  Serious: Yes (Death, Other)
  Sender: FDA-Public Use
  Company Number: VE-ABBVIE-13P-178-1165417-00

PATIENT
  Age: 64 Year
  Sex: Male

DRUGS (1)
  1. ZEMPLAR [Suspect]
     Active Substance: PARICALCITOL
     Indication: CHRONIC KIDNEY DISEASE
     Route: 065
     Dates: start: 201304, end: 201306

REACTIONS (4)
  - Angiosclerosis [Unknown]
  - Infarction [Fatal]
  - Gastrointestinal haemorrhage [Unknown]
  - Cardiac failure [Fatal]

NARRATIVE: CASE EVENT DATE: 20130624
